FAERS Safety Report 24931428 (Version 1)
Quarter: 2025Q1

REPORT INFORMATION
  Report Type: Report from Study
  Country: US (occurrence: US)
  Receive Date: 20250205
  Receipt Date: 20250205
  Transmission Date: 20250409
  Serious: No
  Sender: AURINIA PHARMACEUTICALS
  Company Number: US-AURINIA PHARMACEUTICALS INC.-AUR-006646

PATIENT
  Sex: Male

DRUGS (4)
  1. LUPKYNIS [Suspect]
     Active Substance: VOCLOSPORIN
     Indication: Systemic lupus erythematosus
     Dosage: 15.8 MILLIGRAM, BID
     Route: 048
     Dates: start: 20240410
  2. LUPKYNIS [Suspect]
     Active Substance: VOCLOSPORIN
     Indication: Lupus nephritis
  3. MYCOPHENOLATE MOFETIL [Concomitant]
     Active Substance: MYCOPHENOLATE MOFETIL
     Indication: Product used for unknown indication
  4. HYDROXYCHLOROQUINE [Concomitant]
     Active Substance: HYDROXYCHLOROQUINE
     Indication: Product used for unknown indication

REACTIONS (16)
  - Dry eye [Unknown]
  - Eye swelling [Unknown]
  - Hypoaesthesia [Unknown]
  - Paraesthesia [Unknown]
  - Blood urine present [Unknown]
  - Muscular weakness [Unknown]
  - COVID-19 [Unknown]
  - Pruritus [Unknown]
  - Arthralgia [Unknown]
  - Animal bite [Unknown]
  - Swelling [Unknown]
  - Muscle tightness [Unknown]
  - Gait disturbance [Unknown]
  - Peripheral swelling [Recovered/Resolved]
  - Weight increased [Unknown]
  - Herpes zoster [Unknown]

NARRATIVE: CASE EVENT DATE: 20240101
